FAERS Safety Report 7898611-4 (Version None)
Quarter: 2011Q4

REPORT INFORMATION
  Report Type: 
  Country: None (occurrence: None)
  Receive Date: 20111107
  Receipt Date: 20111107
  Transmission Date: 20120403
  Serious: Yes (Other)
  Sender: FDA-Public Use
  Company Number: None

PATIENT
  Sex: Female
  Weight: 77.11 kg

DRUGS (1)
  1. MONISTAT [Suspect]
     Indication: VULVOVAGINAL MYCOTIC INFECTION
     Dosage: 1 DOSE
     Route: 067
     Dates: start: 20110901, end: 20110902

REACTIONS (5)
  - APPLICATION SITE PAIN [None]
  - APPLICATION SITE SWELLING [None]
  - APPLICATION SITE BURN [None]
  - PRODUCT FORMULATION ISSUE [None]
  - APPLICATION SITE INFLAMMATION [None]
